FAERS Safety Report 16368144 (Version 4)
Quarter: 2019Q4

REPORT INFORMATION
  Report Type: Report from Study
  Country: US (occurrence: US)
  Receive Date: 20190529
  Receipt Date: 20191029
  Transmission Date: 20200122
  Serious: Yes (Other)
  Sender: FDA-Public Use
  Company Number: US-PFIZER INC-2019226449

PATIENT
  Age: 60 Year
  Sex: Female

DRUGS (4)
  1. IBRANCE [Suspect]
     Active Substance: PALBOCICLIB
     Dosage: 125 MG, CYCLIC (125MG DAILY FOR 21 DAYS OF 28-DAY CYCLE)
     Route: 048
     Dates: start: 20190509
  2. IBRANCE [Suspect]
     Active Substance: PALBOCICLIB
     Dosage: 100 MG, CYCLIC (100MG DAILY FOR 21 DAYS OFF)
     Dates: start: 20190809
  3. IBRANCE [Suspect]
     Active Substance: PALBOCICLIB
     Indication: BREAST CANCER FEMALE
     Dosage: 125 MG, CYCLIC (DAILY FOR 21 DAYS ON, 7 DAYS OFF)
     Route: 048
     Dates: start: 20180915, end: 20190522
  4. IBRANCE [Suspect]
     Active Substance: PALBOCICLIB
     Dosage: 125 MG, CYCLIC (DAILY FOR 21 DAYS ON, 7 DAYS OFF)
     Route: 048
     Dates: start: 20190711, end: 20190808

REACTIONS (9)
  - Thrombocytopenia [Unknown]
  - Fatigue [Unknown]
  - Vomiting [Unknown]
  - Onychoclasis [Unknown]
  - Hypophagia [Unknown]
  - Bone marrow failure [Unknown]
  - Nausea [Unknown]
  - Hot flush [Unknown]
  - Pain [Unknown]

NARRATIVE: CASE EVENT DATE: 2019
